FAERS Safety Report 4952244-8 (Version None)
Quarter: 2006Q1

REPORT INFORMATION
  Report Type: 
  Country: None (occurrence: None)
  Receive Date: 20060309
  Receipt Date: 20060302
  Transmission Date: 20060701
  Serious: Yes (Other)
  Sender: FDA-Public Use
  Company Number: SEWYE443402MAR06

PATIENT
  Age: 13 Year
  Sex: Male

DRUGS (1)
  1. REFACTO [Suspect]
     Indication: FACTOR VIII DEFICIENCY
     Dosage: 2000 IU 1X PER 2 DAY
     Dates: start: 20051201

REACTIONS (2)
  - FACTOR VIII INHIBITION [None]
  - MUSCLE HAEMORRHAGE [None]
